FAERS Safety Report 4597210-X (Version None)
Quarter: 2005Q1

REPORT INFORMATION
  Report Type: 
  Country: None (occurrence: None)
  Receive Date: 20050301
  Receipt Date: 20050221
  Transmission Date: 20050727
  Serious: Yes (Hospitalization)
  Sender: FDA-Public Use
  Company Number: 2004SE05682

PATIENT
  Age: 81 Year
  Sex: Female
  Weight: 45 kg

DRUGS (12)
  1. BLOPRESS [Suspect]
     Indication: HYPERTENSION
     Dosage: 8 MG QD PO
     Route: 048
     Dates: start: 20040705, end: 20040706
  2. BLOPRESS [Suspect]
     Indication: HYPERTENSION
     Dosage: 16 MG BID PO
     Route: 048
     Dates: start: 20040707, end: 20040914
  3. BLOPRESS [Suspect]
     Indication: HYPERTENSION
     Dosage: 8 MG QD PO
     Route: 048
     Dates: start: 20040915, end: 20040916
  4. ASPIRIN [Concomitant]
  5. PANALDINE [Concomitant]
  6. SIGMART [Concomitant]
  7. RENIVACE [Concomitant]
  8. LASIX [Concomitant]
  9. ULCERLMIN [Concomitant]
  10. ADALAT [Concomitant]
  11. SLOW-K [Concomitant]
  12. WARFARIN SODIUM [Concomitant]

REACTIONS (4)
  - DECREASED APPETITE [None]
  - DRUG INEFFECTIVE [None]
  - ORAL INTAKE REDUCED [None]
  - WEIGHT DECREASED [None]
